FAERS Safety Report 7391110-8 (Version None)
Quarter: 2011Q2

REPORT INFORMATION
  Report Type: 
  Country: None (occurrence: None)
  Receive Date: 20110404
  Receipt Date: 20110323
  Transmission Date: 20111010
  Serious: Yes (Other)
  Sender: FDA-Public Use
  Company Number: US-ELI_LILLY_AND_COMPANY-US201103007208

PATIENT
  Age: 48 Year
  Sex: Male

DRUGS (4)
  1. CELEXA [Concomitant]
  2. ZYPREXA RELPREVV [Suspect]
     Indication: SCHIZOPHRENIA
     Dosage: 210 MG, 2/W
     Dates: start: 20110214
  3. ZYPREXA [Suspect]
     Dosage: UNK
     Route: 048
  4. DOXEPIN [Concomitant]

REACTIONS (1)
  - TRANSIENT ISCHAEMIC ATTACK [None]
